FAERS Safety Report 6110102-X (Version None)
Quarter: 2009Q1

REPORT INFORMATION
  Report Type: 
  Country: None (occurrence: None)
  Receive Date: 20090310
  Receipt Date: 20090306
  Transmission Date: 20090719
  Serious: Yes (Hospitalization, Other)
  Sender: FDA-Public Use
  Company Number: US-MERCK-0703USA03251

PATIENT
  Age: 77 Year
  Sex: Female

DRUGS (18)
  1. FOSAMAX [Suspect]
     Indication: OSTEOPENIA
     Route: 048
     Dates: start: 20020501, end: 20060101
  2. FOSAMAX [Suspect]
     Indication: OSTEOPOROSIS
     Route: 048
     Dates: start: 20020501, end: 20060101
  3. SYNTHROID [Concomitant]
     Indication: HYPOTHYROIDISM
     Route: 048
  4. DIOVAN [Concomitant]
     Indication: HYPERTENSION
     Route: 048
     Dates: start: 20001227
  5. VIOXX [Concomitant]
     Indication: OSTEOARTHRITIS
     Route: 048
     Dates: start: 20010308, end: 20040930
  6. CALTRATE + D [Concomitant]
     Route: 048
  7. AMOXICILLIN [Concomitant]
     Indication: PROPHYLAXIS
     Route: 065
     Dates: start: 20030204, end: 20030208
  8. AMOXICILLIN [Concomitant]
     Route: 065
     Dates: start: 20030609, end: 20030612
  9. AMOXICILLIN [Concomitant]
     Route: 065
     Dates: start: 20040602, end: 20040606
  10. AMOXICILLIN [Concomitant]
     Route: 065
     Dates: start: 20050316
  11. AMOXICILLIN [Concomitant]
     Route: 065
     Dates: start: 20050512, end: 20050605
  12. LEVAQUIN [Concomitant]
     Indication: PROPHYLAXIS
     Route: 065
     Dates: start: 20030214, end: 20030221
  13. CELEBREX [Concomitant]
     Indication: OSTEOARTHRITIS
     Route: 065
     Dates: start: 20040930, end: 20041230
  14. NAPROXEN [Concomitant]
     Indication: OSTEOARTHRITIS
     Route: 065
     Dates: start: 20041129, end: 20041228
  15. NAPROXEN [Concomitant]
     Route: 065
     Dates: start: 20050714, end: 20050816
  16. NAPROXEN [Concomitant]
     Route: 065
     Dates: start: 20060226, end: 20060330
  17. NAPROXEN [Concomitant]
     Route: 065
     Dates: start: 20060817, end: 20060918
  18. MEPREDNISONE [Concomitant]
     Route: 065
     Dates: start: 20050128, end: 20050202

REACTIONS (14)
  - ANXIETY [None]
  - ARTHROPATHY [None]
  - BRONCHITIS [None]
  - CATARACT [None]
  - CELLULITIS [None]
  - CONJUNCTIVITIS [None]
  - CONTUSION [None]
  - DEPRESSION [None]
  - EMOTIONAL DISTRESS [None]
  - HYPERKERATOSIS [None]
  - IRON DEFICIENCY ANAEMIA [None]
  - OSTEOMYELITIS [None]
  - OSTEONECROSIS [None]
  - URINARY TRACT INFECTION [None]
